FAERS Safety Report 7396554-6 (Version None)
Quarter: 2011Q2

REPORT INFORMATION
  Report Type: 
  Country: None (occurrence: None)
  Receive Date: 20110406
  Receipt Date: 20110325
  Transmission Date: 20111010
  Serious: Yes (Death, Other)
  Sender: FDA-Public Use
  Company Number: ES-SANOFI-AVENTIS-2011SA020474

PATIENT

DRUGS (6)
  1. RITUXIMAB [Suspect]
     Dosage: DAY 1 OF EACH CYCLE
     Route: 065
     Dates: start: 20040901, end: 20040901
  2. RITUXIMAB [Suspect]
     Dosage: DAY 1 OF EACH CYCLE
     Route: 065
     Dates: start: 20060301, end: 20060301
  3. FLUDARABINE PHOSPHATE [Suspect]
     Route: 065
     Dates: start: 20060301, end: 20060301
  4. CYCLOPHOSPHAMIDE [Suspect]
     Dosage: DAY 1 EACH CYCLE DOSE:1 GRAM(S)/SQUARE METER
     Route: 065
     Dates: start: 20040901, end: 20040901
  5. FLUDARABINE PHOSPHATE [Suspect]
     Route: 065
     Dates: start: 20040901, end: 20040901
  6. CYCLOPHOSPHAMIDE [Suspect]
     Dosage: DAY 1 EACH CYCLE DOSE:1 GRAM(S)/SQUARE METER
     Route: 065
     Dates: start: 20060301, end: 20060301

REACTIONS (2)
  - CARDIAC FAILURE [None]
  - PYREXIA [None]
